FAERS Safety Report 25927868 (Version 2)
Quarter: 2025Q4

REPORT INFORMATION
  Report Type: Spontaneous
  Country: US (occurrence: US)
  Receive Date: 20251016
  Receipt Date: 20251030
  Transmission Date: 20260118
  Serious: Yes (Hospitalization)
  Sender: TEVA
  Company Number: US-TEVA-VS-3379858

PATIENT
  Age: 50 Year
  Sex: Male

DRUGS (3)
  1. MORPHINE [Suspect]
     Active Substance: MORPHINE
     Indication: Pain
     Dosage: 10 MG/ML VIA INTRATHECAL PUMP
     Route: 037
  2. BUPIVACAINE [Suspect]
     Active Substance: BUPIVACAINE
     Indication: Pain
     Dosage: 3.75 MG/ML VIA INTRATHECAL PUMP
     Route: 037
  3. BACLOFEN [Suspect]
     Active Substance: BACLOFEN
     Indication: Pain
     Dosage: 200 MCG/ML VIA INTRATHECAL PUMP
     Route: 037

REACTIONS (3)
  - Loss of consciousness [Recovered/Resolved]
  - Accidental overdose [Unknown]
  - Product administration error [Unknown]
